FAERS Safety Report 9513949 (Version 2)
Quarter: 2013Q4

REPORT INFORMATION
  Report Type: Report from Study
  Country: US (occurrence: US)
  Receive Date: 20130910
  Receipt Date: 20131008
  Transmission Date: 20140711
  Serious: Yes (Other)
  Sender: FDA-Public Use
  Company Number: US-BRISTOL-MYERS SQUIBB COMPANY-19345164

PATIENT
  Sex: Male

DRUGS (1)
  1. SPRYCEL [Suspect]

REACTIONS (2)
  - Dementia [Unknown]
  - Malaise [Unknown]
